FAERS Safety Report 12281364 (Version 5)
Quarter: 2016Q3

REPORT INFORMATION
  Report Type: Spontaneous
  Country: JP (occurrence: JP)
  Receive Date: 20160419
  Receipt Date: 20160704
  Transmission Date: 20161109
  Serious: Yes (Death, Hospitalization)
  Sender: FDA-Public Use
  Company Number: JP-JNJFOC-20160416759

PATIENT
  Age: 44 Year
  Sex: Female

DRUGS (14)
  1. RISPERIDONE ORO-DISPERSIBLE TABLET [Suspect]
     Active Substance: RISPERIDONE
     Indication: SCHIZOPHRENIA
     Route: 048
     Dates: start: 20130531, end: 20131202
  2. CYANAMIDE [Concomitant]
     Active Substance: CYANAMIDE
     Route: 048
     Dates: start: 20130531, end: 20131202
  3. TOPINA [Concomitant]
     Active Substance: TOPIRAMATE
     Route: 048
     Dates: start: 20130712, end: 20130905
  4. AMOBAN [Concomitant]
     Active Substance: ZOPICLONE
     Route: 048
     Dates: start: 20130531, end: 20131202
  5. ABILIFY [Suspect]
     Active Substance: ARIPIPRAZOLE
     Indication: DEPRESSION
     Route: 048
     Dates: start: 20131129, end: 20131202
  6. ABILIFY [Suspect]
     Active Substance: ARIPIPRAZOLE
     Indication: DEPRESSION
     Route: 048
     Dates: start: 20131206
  7. PANTETHINE [Concomitant]
     Active Substance: PANTETHINE
     Route: 048
     Dates: start: 20130531, end: 20131202
  8. LIMAS [Concomitant]
     Active Substance: LITHIUM CARBONATE
     Indication: MANIA
     Route: 048
     Dates: start: 20130531, end: 20131201
  9. LIMAS [Concomitant]
     Active Substance: LITHIUM CARBONATE
     Indication: MANIA
     Route: 048
     Dates: start: 20131202, end: 20131206
  10. TOPINA [Concomitant]
     Active Substance: TOPIRAMATE
     Route: 048
     Dates: start: 20130906, end: 20131202
  11. HIRNAMIN [Suspect]
     Active Substance: PHENOTHIAZINE
     Indication: INSOMNIA
     Route: 048
     Dates: start: 20130531, end: 20131202
  12. RIVOTRIL [Concomitant]
     Active Substance: CLONAZEPAM
     Indication: TENSION
     Route: 048
     Dates: start: 20131202, end: 20131206
  13. RIVOTRIL [Concomitant]
     Active Substance: CLONAZEPAM
     Indication: TENSION
     Route: 048
     Dates: start: 20130531, end: 20131201
  14. PURSENNID [Concomitant]
     Active Substance: SENNOSIDES A AND B
     Route: 048
     Dates: start: 20130531, end: 20131202

REACTIONS (8)
  - Stupor [Unknown]
  - Blood creatine phosphokinase increased [Recovering/Resolving]
  - Cardio-respiratory arrest [Recovered/Resolved]
  - Incontinence [Unknown]
  - Communication disorder [Unknown]
  - Pulmonary embolism [Fatal]
  - Pneumonia [Unknown]
  - Dizziness [Unknown]

NARRATIVE: CASE EVENT DATE: 20131202
